FAERS Safety Report 9199606 (Version 3)
Quarter: 2013Q2

REPORT INFORMATION
  Report Type: Report from Study
  Country: US (occurrence: US)
  Receive Date: 20130329
  Receipt Date: 20130410
  Transmission Date: 20140414
  Serious: No
  Sender: FDA-Public Use
  Company Number: US-VERTEX PHARMACEUTICALS INC.-2013-004217

PATIENT
  Age: 57 Year
  Sex: Male
  Weight: 123 kg

DRUGS (15)
  1. VX-950 (TELAPREVIR) [Suspect]
     Indication: HEPATITIS C
     Dosage: 750 MG, TID
     Route: 048
     Dates: start: 20130221
  2. RIBAVIRIN [Suspect]
     Indication: HEPATITIS C
     Dosage: 600 MG, BID
     Dates: start: 20130221
  3. PEGASYS [Suspect]
     Indication: HEPATITIS C
     Dosage: 180 ?G, QW
     Route: 058
     Dates: start: 20130221
  4. SINEMET [Concomitant]
     Dosage: 25-100 MG
  5. METFORMIN [Concomitant]
     Dosage: 500 MG, UNK
  6. TRIHEXYPHEN [Concomitant]
     Dosage: 5 MG, UNK
  7. RISPERIDONE [Concomitant]
     Dosage: 1 MG/ML
  8. FUROSEMIDE [Concomitant]
     Dosage: 20 MG, UNK
  9. K-TAB [Concomitant]
     Dosage: 10 MEQ, UNK
  10. GLYBURIDE [Concomitant]
     Dosage: 1.25 MG, UNK
  11. LISINOPRIL [Concomitant]
     Dosage: 30 MG, UNK
  12. BUPROPION [Concomitant]
     Dosage: 150 MG, UNK
  13. CLONAZEPAM [Concomitant]
     Dosage: 1 MG, UNK
  14. LANTUS [Concomitant]
     Dosage: 100/ML
  15. APIDRA [Concomitant]
     Dosage: U-100

REACTIONS (9)
  - Dyspnoea [Unknown]
  - Influenza like illness [Recovered/Resolved]
  - Dizziness [Recovered/Resolved]
  - Chills [Recovered/Resolved]
  - Dysarthria [Unknown]
  - Irritability [Unknown]
  - Pain [Recovered/Resolved]
  - Thirst [Recovered/Resolved]
  - Asthenia [Recovered/Resolved]
